FAERS Safety Report 19014152 (Version 1)
Quarter: 2021Q1

REPORT INFORMATION
  Report Type: Spontaneous
  Country: NO (occurrence: NO)
  Receive Date: 20210316
  Receipt Date: 20210316
  Transmission Date: 20210420
  Serious: Yes (Hospitalization, Disabling, Congenital Anomaly)
  Sender: FDA-Public Use
  Company Number: NO-ROCHE-2783362

PATIENT
  Sex: Male

DRUGS (1)
  1. RITUXIMAB. [Suspect]
     Active Substance: RITUXIMAB
     Indication: PRODUCT USED FOR UNKNOWN INDICATION
     Dosage: THE MOTHER WAS ADMINISTERED THE LAST DOSE LESS THAN 3 MONTHS BEFORE CONCEPTION
     Route: 064

REACTIONS (2)
  - Apparent life threatening event [Recovered/Resolved with Sequelae]
  - Drug exposure before pregnancy [Unknown]

NARRATIVE: CASE EVENT DATE: 2020
